FAERS Safety Report 11653562 (Version 2)
Quarter: 2015Q4

REPORT INFORMATION
  Report Type: Spontaneous
  Country: US (occurrence: US)
  Receive Date: 20151022
  Receipt Date: 20151120
  Transmission Date: 20160304
  Serious: Yes (Congenital Anomaly, Other)
  Sender: FDA-Public Use
  Company Number: US-ELI_LILLY_AND_COMPANY-US201510005558

PATIENT

DRUGS (4)
  1. LASIX [Concomitant]
     Active Substance: FUROSEMIDE
     Dosage: 10 DF, UNK
     Route: 048
  2. PROZAC [Suspect]
     Active Substance: FLUOXETINE HYDROCHLORIDE
     Indication: PRODUCT USED FOR UNKNOWN INDICATION
     Route: 064
  3. LASIX [Concomitant]
     Active Substance: FUROSEMIDE
     Route: 042
  4. LASIX [Concomitant]
     Active Substance: FUROSEMIDE
     Dosage: UNK, TID
     Route: 048

REACTIONS (9)
  - Pulmonary artery stenosis congenital [Unknown]
  - Pleural effusion [Unknown]
  - Hypokalaemia [Unknown]
  - Atrial septal defect [Unknown]
  - Heart disease congenital [Unknown]
  - Foetal exposure during pregnancy [Unknown]
  - Post procedural persistent drain fluid [Unknown]
  - Congenital tricuspid valve atresia [Unknown]
  - Ventricular septal defect [Unknown]
